FAERS Safety Report 11257276 (Version 1)
Quarter: 2015Q3

REPORT INFORMATION
  Report Type: Other
  Country: GB (occurrence: GB)
  Receive Date: 20150709
  Receipt Date: 20150709
  Transmission Date: 20151125
  Serious: Yes (Other)
  Sender: FDA-Public Use
  Company Number: GB-MYLANLABS-2015M1021893

PATIENT

DRUGS (10)
  1. ATORVASTATIN [Suspect]
     Active Substance: ATORVASTATIN
     Dosage: UNK
     Dates: start: 20140519
  2. BISOPROLOL [Concomitant]
     Active Substance: BISOPROLOL
     Dosage: 1 DF, QD
     Dates: start: 20140127
  3. NITROLINGUAL [Concomitant]
     Active Substance: NITROGLYCERIN
     Dosage: 1 DF, UNK AS NECESSARY (1 PUFF AS NEEDED.)
     Dates: start: 20140127, end: 20150409
  4. OTOMIZE [Concomitant]
     Active Substance: DEXAMETHASONE\NEOMYCIN SULFATE
     Dosage: 1 GTT, TID
     Dates: start: 20150602, end: 20150609
  5. PARACETAMOL [Concomitant]
     Active Substance: ACETAMINOPHEN
     Dosage: 2 DF, UNK (FOUR TIMES A DAY WHEN REQUIRED)
     Dates: start: 20140127, end: 20150409
  6. LEVOTHYROXINE. [Concomitant]
     Active Substance: LEVOTHYROXINE
     Dosage: 1 DF, QD (EACH MORNING)
     Dates: start: 20140401
  7. LOSARTAN. [Concomitant]
     Active Substance: LOSARTAN
     Dosage: 1 DF, QD
     Dates: start: 20140127
  8. METFORMIN [Concomitant]
     Active Substance: METFORMIN HYDROCHLORIDE
     Dosage: 1 DF, QD (WITH BREAKFAST)
     Dates: start: 20140609
  9. ASPIRIN                            /00002701/ [Concomitant]
     Active Substance: ASPIRIN
     Dosage: 1 DF, QD
     Dates: start: 20140127
  10. MONOMIL XL [Concomitant]
     Dosage: 1.5 DF, QD (IN THE MORNING)
     Dates: start: 20140127

REACTIONS (3)
  - Blood creatine phosphokinase increased [Unknown]
  - Back pain [Unknown]
  - Pain [Unknown]

NARRATIVE: CASE EVENT DATE: 20150616
